APPROVED DRUG PRODUCT: MANGANESE CHLORIDE IN PLASTIC CONTAINER
Active Ingredient: MANGANESE CHLORIDE
Strength: EQ 0.1MG MANGANESE/ML
Dosage Form/Route: INJECTABLE;INJECTION
Application: N018962 | Product #001 | TE Code: AP
Applicant: HOSPIRA INC
Approved: Jun 26, 1986 | RLD: Yes | RS: Yes | Type: RX